FAERS Safety Report 10765008 (Version 2)
Quarter: 2015Q1

REPORT INFORMATION
  Report Type: Spontaneous
  Country: US (occurrence: US)
  Receive Date: 20150205
  Receipt Date: 20150330
  Transmission Date: 20150721
  Serious: No
  Sender: FDA-Public Use
  Company Number: US-PFIZER INC-2015043435

PATIENT
  Age: 68 Year
  Sex: Female

DRUGS (3)
  1. COPAXONE [Concomitant]
     Active Substance: GLATIRAMER ACETATE
     Indication: MULTIPLE SCLEROSIS
     Dosage: 20 MG, DAILY
  2. COPAXONE [Concomitant]
     Active Substance: GLATIRAMER ACETATE
     Dosage: 40 MG, THREE TIMES A WEEK
  3. ADVIL [Suspect]
     Active Substance: IBUPROFEN
     Indication: NEURALGIA
     Dosage: UNK, ONCE AT NIGHT

REACTIONS (2)
  - Expired product administered [Unknown]
  - Abdominal discomfort [Unknown]
